FAERS Safety Report 9879982 (Version 2)
Quarter: 2014Q1

REPORT INFORMATION
  Report Type: Spontaneous
  Country: US (occurrence: US)
  Receive Date: 20140207
  Receipt Date: 20140325
  Transmission Date: 20141002
  Serious: No
  Sender: FDA-Public Use
  Company Number: US-009507513-1401USA008134

PATIENT
  Sex: Female

DRUGS (12)
  1. PEGINTRON [Suspect]
     Indication: HEPATITIS C
     Dosage: 0.5 CC, ONCE A WEEK, REDIPEN
     Route: 058
     Dates: start: 20140110
  2. RIBAVIRIN [Suspect]
     Indication: HEPATITIS C
     Dosage: 1 DF, BID (1 AM AND PM)
     Route: 048
     Dates: start: 20140110
  3. HYDROCHLOROTHIAZIDE [Concomitant]
     Dosage: 1, QD
     Route: 048
  4. SOVALDI [Concomitant]
     Dosage: 1 DF, QD
     Route: 048
  5. NORVASC [Concomitant]
     Dosage: 1 DF, QD
     Route: 048
  6. METFORMIN [Concomitant]
     Dosage: 1 DF,QD
     Route: 048
  7. ZANTAC [Concomitant]
     Dosage: 1, PRN
  8. LEVOBUNOLOL HYDROCHLORIDE [Concomitant]
     Dosage: 1 DROP EACH EYE Q AM
  9. TRAVATAN [Concomitant]
     Dosage: 1 DROP EACH EYE QPM
  10. CYANOCOBALAMIN [Concomitant]
     Dosage: 1 DF, QD
     Route: 060
  11. RIBOFLAVIN [Concomitant]
     Dosage: 1 DF, QD
     Route: 048
  12. BENADRYL [Concomitant]
     Dosage: 1 UP TO 2/DAY PRN

REACTIONS (4)
  - Injection site reaction [Unknown]
  - Rash maculo-papular [Unknown]
  - Nausea [Unknown]
  - Headache [Unknown]
